FAERS Safety Report 8366311-2 (Version None)
Quarter: 2012Q2

REPORT INFORMATION
  Report Type: 
  Country: None (occurrence: None)
  Receive Date: 20120517
  Receipt Date: 20120515
  Transmission Date: 20120825
  Serious: Yes (Death)
  Sender: FDA-Public Use
  Company Number: PHEH2012US009193

PATIENT
  Sex: Male

DRUGS (1)
  1. RECLAST [Suspect]
     Route: 042
     Dates: start: 20110401

REACTIONS (2)
  - AORTIC STENOSIS [None]
  - ARRHYTHMIA [None]
